FAERS Safety Report 5013195-6 (Version None)
Quarter: 2006Q2

REPORT INFORMATION
  Report Type: 
  Country: None (occurrence: None)
  Receive Date: 20060530
  Receipt Date: 20060317
  Transmission Date: 20061013
  Serious: No
  Sender: FDA-Public Use
  Company Number: US-GLAXOSMITHKLINE-A0598028A

PATIENT
  Age: 62 Year
  Sex: Male

DRUGS (4)
  1. WELLBUTRIN XL [Suspect]
     Indication: DEPRESSION
     Route: 048
     Dates: start: 20040101, end: 20050101
  2. FOSAMAX [Concomitant]
  3. AMPICILLIN SODIUM [Concomitant]
  4. ASPIRIN [Concomitant]

REACTIONS (1)
  - TINNITUS [None]
